FAERS Safety Report 8294795-7 (Version None)
Quarter: 2012Q2

REPORT INFORMATION
  Report Type: 
  Country: None (occurrence: None)
  Receive Date: 20120418
  Receipt Date: 20120416
  Transmission Date: 20120825
  Serious: Yes (Hospitalization)
  Sender: FDA-Public Use
  Company Number: PHEH2012US008135

PATIENT
  Sex: Female

DRUGS (5)
  1. METOPROLOL TARTRATE [Suspect]
  2. LOPRESSOR [Suspect]
     Dosage: 100 MG, BID
  3. ACTOS [Concomitant]
  4. LOPRESSOR [Suspect]
     Dosage: 50 MG, BID
  5. METFORMIN HCL [Concomitant]

REACTIONS (1)
  - NEPHROLITHIASIS [None]
